FAERS Safety Report 5562363-3 (Version None)
Quarter: 2007Q4

REPORT INFORMATION
  Report Type: 
  Country: None (occurrence: None)
  Receive Date: 20071215
  Receipt Date: 20070725
  Transmission Date: 20080405
  Serious: No
  Sender: FDA-Public Use
  Company Number: US-AMGEN-US235824

PATIENT
  Sex: Female
  Weight: 123.5 kg

DRUGS (13)
  1. ARANESP [Suspect]
     Indication: RENAL FAILURE CHRONIC
     Route: 058
     Dates: start: 20070717
  2. FUROSEMIDE [Concomitant]
     Route: 065
  3. CITALOPRAM HYDROBROMIDE [Concomitant]
     Route: 065
  4. KLOR-CON [Concomitant]
     Route: 065
  5. LISINOPRIL [Concomitant]
     Route: 065
  6. MIRAPEX [Concomitant]
     Route: 065
  7. MIRTAZAPINE [Concomitant]
     Route: 065
  8. NAPROXEN [Concomitant]
     Route: 065
  9. ACETAMINOPHEN [Concomitant]
     Route: 065
  10. REMERON [Concomitant]
     Route: 065
  11. EFFEXOR [Concomitant]
     Route: 065
  12. CELEXA [Concomitant]
     Route: 065
  13. POTASSIUM CHLORIDE [Concomitant]
     Route: 065

REACTIONS (2)
  - PARAESTHESIA [None]
  - POOR QUALITY SLEEP [None]
